FAERS Safety Report 12842886 (Version 1)
Quarter: 2016Q4

REPORT INFORMATION
  Report Type: Spontaneous
  Country: US (occurrence: US)
  Receive Date: 20161012
  Receipt Date: 20161012
  Transmission Date: 20170207
  Serious: No
  Sender: FDA-Public Use
  Company Number: None

PATIENT
  Age: 28 Year
  Sex: Male

DRUGS (1)
  1. COPAXONE [Suspect]
     Active Substance: GLATIRAMER ACETATE
     Route: 058
     Dates: start: 20150514

REACTIONS (5)
  - Rash [None]
  - Flushing [None]
  - Paraesthesia oral [None]
  - Pharyngeal inflammation [None]
  - Eye pruritus [None]

NARRATIVE: CASE EVENT DATE: 20161012
